FAERS Safety Report 6380956-0 (Version None)
Quarter: 2009Q3

REPORT INFORMATION
  Report Type: 
  Country: None (occurrence: None)
  Receive Date: 20090929
  Receipt Date: 20090916
  Transmission Date: 20100115
  Serious: Yes (Other)
  Sender: FDA-Public Use
  Company Number: NL-ELI_LILLY_AND_COMPANY-NL200908001169

PATIENT
  Age: 27 Year
  Sex: Female
  Weight: 121 kg

DRUGS (5)
  1. PROZAC [Suspect]
     Indication: DEPRESSION
     Dosage: 20 MG, UNK
     Dates: end: 20060101
  2. PROZAC [Suspect]
     Dosage: 40 MG, DAILY (1/D)
     Dates: start: 20060601, end: 20090101
  3. PROZAC [Suspect]
     Dosage: 80 MG, DAILY (1/D)
     Dates: start: 20090801
  4. THYRAX DUOTAB [Concomitant]
     Dosage: 0.1 MG, OTHER
  5. DEPO PROVERA /00115201/ [Concomitant]
     Dosage: 1 D/F, OTHER

REACTIONS (4)
  - DEPRESSION [None]
  - DRUG INEFFECTIVE [None]
  - OBESITY [None]
  - OVERDOSE [None]
